APPROVED DRUG PRODUCT: COMBIPRES
Active Ingredient: CHLORTHALIDONE; CLONIDINE HYDROCHLORIDE
Strength: 15MG;0.3MG **Federal Register determination that product was not discontinued or withdrawn for safety or effectiveness reasons**
Dosage Form/Route: TABLET;ORAL
Application: N017503 | Product #003
Applicant: BOEHRINGER INGELHEIM PHARMACEUTICALS INC
Approved: Apr 10, 1984 | RLD: Yes | RS: No | Type: DISCN